FAERS Safety Report 9663666 (Version 1)
Quarter: 2013Q4

REPORT INFORMATION
  Report Type: Spontaneous
  Country: US (occurrence: US)
  Receive Date: 20131101
  Receipt Date: 20131101
  Transmission Date: 20140711
  Serious: Yes (Other)
  Sender: FDA-Public Use
  Company Number: PHEH2013US022784

PATIENT
  Sex: Female

DRUGS (2)
  1. EXFORGE [Suspect]
  2. LOSARTAN [Concomitant]

REACTIONS (1)
  - Diabetes mellitus [Unknown]
